FAERS Safety Report 20704166 (Version 2)
Quarter: 2022Q3

REPORT INFORMATION
  Report Type: Spontaneous
  Country: US (occurrence: US)
  Receive Date: 20220413
  Receipt Date: 20220707
  Transmission Date: 20221027
  Serious: Yes (Hospitalization)
  Sender: FDA-Public Use
  Company Number: US-CELGENE-USA-20211202402

PATIENT
  Age: 84 Year
  Sex: Female
  Weight: 77.3 kg

DRUGS (3)
  1. AZACITIDINE [Suspect]
     Active Substance: AZACITIDINE
     Indication: Myelodysplastic syndrome
     Dosage: FREQUENCY TEXT: NOT PROVIDED?FOR 7 DAYS WITHIN THE FIRST 9 CALENDAR DAYS OF EACH 28 DAY CYCLE
     Route: 058
     Dates: start: 20211118
  2. ATENOLOL;HYDROCHLOROTHIAZIDE [Concomitant]
     Indication: Arrhythmia
     Route: 048
     Dates: start: 20211118
  3. ACYCLOVIR [Concomitant]
     Active Substance: ACYCLOVIR
     Indication: Prophylaxis
     Route: 048
     Dates: start: 20211116

REACTIONS (1)
  - Nausea [Recovered/Resolved]

NARRATIVE: CASE EVENT DATE: 20211129
